FAERS Safety Report 5237947-2 (Version None)
Quarter: 2007Q1

REPORT INFORMATION
  Report Type: 
  Country: None (occurrence: None)
  Receive Date: 20070214
  Receipt Date: 20070205
  Transmission Date: 20070707
  Serious: Yes (Hospitalization)
  Sender: FDA-Public Use
  Company Number: JP-PFIZER INC-2007010218

PATIENT
  Age: 74 Year
  Sex: Male
  Weight: 65 kg

DRUGS (7)
  1. AMLODIPINE BESYLATE [Suspect]
     Indication: HYPERTENSION
     Route: 048
     Dates: start: 20000725, end: 20000803
  2. AMLODIPINE BESYLATE [Suspect]
     Route: 048
     Dates: start: 20060613, end: 20060911
  3. ZOLADEX [Suspect]
     Indication: PROSTATE CANCER
     Route: 058
     Dates: start: 20060527, end: 20060826
  4. ACECOL [Concomitant]
     Route: 048
  5. MIKELAN [Concomitant]
     Indication: HYPERTENSION
     Route: 048
  6. AM [Concomitant]
     Indication: STOMACH DISCOMFORT
     Route: 048
     Dates: start: 20041130
  7. URINORM [Concomitant]
     Indication: HYPERURICAEMIA
     Route: 048
     Dates: start: 20050222

REACTIONS (7)
  - ANAEMIA HAEMOLYTIC AUTOIMMUNE [None]
  - HYPERTENSION [None]
  - HYPERURICAEMIA [None]
  - IDIOPATHIC THROMBOCYTOPENIC PURPURA [None]
  - PLATELET COUNT DECREASED [None]
  - PROSTATE CANCER [None]
  - STOMACH DISCOMFORT [None]
